FAERS Safety Report 4456185-4 (Version None)
Quarter: 2004Q3

REPORT INFORMATION
  Report Type: 
  Country: None (occurrence: None)
  Receive Date: 20040920
  Receipt Date: 20040903
  Transmission Date: 20050211
  Serious: Yes (Death, Hospitalization)
  Sender: FDA-Public Use
  Company Number: 04P-150-0268082-00

PATIENT
  Age: 66 Year
  Sex: Male

DRUGS (4)
  1. HUMIRA [Suspect]
     Indication: RHEUMATOID ARTHRITIS
     Dosage: 40 MG, 1 IN 2 WK, SUBCUTANEOUS
     Route: 058
     Dates: start: 20031215, end: 20040209
  2. METHOTREXATE [Suspect]
     Indication: RHEUMATOID ARTHRITIS
     Dosage: 15 MG, 1 IN 1 WK, PER ORAL
     Route: 048
     Dates: start: 19990101, end: 20040209
  3. PREDNISOLONE [Concomitant]
  4. NAPROXEN [Concomitant]

REACTIONS (11)
  - ADVERSE DRUG REACTION [None]
  - CHEST PAIN [None]
  - COUGH [None]
  - DIVERTICULITIS [None]
  - DYSPNOEA [None]
  - FATIGUE [None]
  - GENERAL PHYSICAL HEALTH DETERIORATION [None]
  - INCREASED UPPER AIRWAY SECRETION [None]
  - PNEUMOCYSTIS CARINII INFECTION [None]
  - PULMONARY FIBROSIS [None]
  - PYREXIA [None]
